FAERS Safety Report 20941496 (Version 1)
Quarter: 2022Q2

REPORT INFORMATION
  Report Type: Spontaneous
  Country: DK (occurrence: DK)
  Receive Date: 20220610
  Receipt Date: 20220610
  Transmission Date: 20220720
  Serious: Yes (Death, Life-Threatening)
  Sender: FDA-Public Use
  Company Number: None

PATIENT
  Age: 69 Year
  Sex: Female

DRUGS (4)
  1. XARELTO [Suspect]
     Active Substance: RIVAROXABAN
     Indication: Thrombosis prophylaxis
     Dosage: STRENGTH: 20 MG
     Route: 048
     Dates: start: 20210802, end: 20220511
  2. ACETAMINOPHEN [Concomitant]
     Active Substance: ACETAMINOPHEN
     Indication: Pain
     Dates: start: 20210802
  3. LOSARTANKALIUM/HYDROCHLORTHIAZID ^KRKA^ [Concomitant]
     Indication: Hypertension
     Dates: start: 20210802
  4. AMLODIPINA SANDOZ [Concomitant]
     Indication: Hypertension
     Dates: start: 20211013

REACTIONS (8)
  - Aphasia [Fatal]
  - Neurological symptom [Fatal]
  - General physical health deterioration [Fatal]
  - Hemiparesis [Fatal]
  - Eye movement disorder [Fatal]
  - Intraventricular haemorrhage [Fatal]
  - Cerebral haemorrhage [Fatal]
  - Depressed level of consciousness [Fatal]

NARRATIVE: CASE EVENT DATE: 20220501
